FAERS Safety Report 7479394-9 (Version None)
Quarter: 2011Q2

REPORT INFORMATION
  Report Type: 
  Country: None (occurrence: None)
  Receive Date: 20110513
  Receipt Date: 20110504
  Transmission Date: 20111010
  Serious: Yes (Hospitalization)
  Sender: FDA-Public Use
  Company Number: FR-PFIZER INC-2007026661

PATIENT
  Age: 89 Year
  Sex: Female

DRUGS (12)
  1. LEXOMIL [Concomitant]
  2. DEBRIDAT [Concomitant]
  3. HEXAQUINE [Concomitant]
  4. VASTAREL [Concomitant]
  5. FENOFIBRATE [Concomitant]
     Dosage: UNK
     Dates: end: 20070301
  6. FELDENE [Suspect]
     Indication: MYALGIA
     Route: 048
     Dates: start: 20070208, end: 20070218
  7. ETHINYL ESTRADIOL [Concomitant]
  8. EFFEXOR XR [Suspect]
     Indication: DEPRESSION
     Dosage: 75 MG, 1X/DAY
     Route: 048
     Dates: start: 20070224, end: 20070225
  9. ZOLPIDEM [Concomitant]
  10. PULMICORT [Concomitant]
  11. SEREVENT [Concomitant]
  12. RELVENE [Concomitant]

REACTIONS (2)
  - HYPONATRAEMIA [None]
  - CONFUSIONAL STATE [None]
